FAERS Safety Report 7196797-0 (Version None)
Quarter: 2010Q4

REPORT INFORMATION
  Report Type: 
  Country: None (occurrence: None)
  Receive Date: 20101223
  Receipt Date: 20101103
  Transmission Date: 20110411
  Serious: No
  Sender: FDA-Public Use
  Company Number: US-AMGEN-TCS443100

PATIENT

DRUGS (5)
  1. ENBREL [Suspect]
     Indication: RHEUMATOID ARTHRITIS
     Dosage: 50 MG, QWK
     Route: 058
     Dates: start: 20070101
  2. ENBREL [Suspect]
     Indication: PSORIATIC ARTHROPATHY
  3. METFORMIN [Concomitant]
     Dosage: UNK UNK, UNK
  4. INSULIN GLARGINE [Concomitant]
     Dosage: UNK UNK, UNK
  5. INSULIN LISPRO [Concomitant]
     Dosage: UNK UNK, UNK

REACTIONS (1)
  - MUSCULOSKELETAL STIFFNESS [None]
